FAERS Safety Report 22968711 (Version 4)
Quarter: 2024Q2

REPORT INFORMATION
  Report Type: Report from Study
  Country: US (occurrence: US)
  Receive Date: 20230921
  Receipt Date: 20240621
  Transmission Date: 20240722
  Serious: No
  Sender: FDA-Public Use
  Company Number: US-ACADIA PHARMACEUTICALS INC.-ACA-2023-PIM-003821

PATIENT
  Age: 73 Year
  Sex: Male

DRUGS (1)
  1. NUPLAZID [Suspect]
     Active Substance: PIMAVANSERIN TARTRATE
     Indication: Parkinson^s disease
     Dosage: 34 MILLIGRAM, QD
     Route: 048
     Dates: start: 20230801

REACTIONS (9)
  - Headache [Unknown]
  - Abdominal discomfort [Unknown]
  - Crying [Unknown]
  - Headache [Unknown]
  - Abdominal discomfort [Unknown]
  - Abdominal discomfort [Unknown]
  - Headache [Unknown]
  - Patient elopement [Unknown]
  - Nausea [Unknown]

NARRATIVE: CASE EVENT DATE: 20230801
